FAERS Safety Report 21810533 (Version 1)
Quarter: 2022Q4

REPORT INFORMATION
  Report Type: Spontaneous
  Country: US (occurrence: None)
  Receive Date: 20221231
  Receipt Date: 20221231
  Transmission Date: 20230113
  Serious: No
  Sender: FDA-Public Use
  Company Number: None

PATIENT
  Age: 29 Year
  Sex: Female

DRUGS (1)
  1. HUMIRA [Suspect]
     Active Substance: ADALIMUMAB
     Indication: Psoriasis
     Dates: start: 20221229, end: 20221229

REACTIONS (3)
  - Device defective [None]
  - Product leakage [None]
  - Drug dose omission by device [None]

NARRATIVE: CASE EVENT DATE: 20221229
